FAERS Safety Report 6179782-7 (Version None)
Quarter: 2009Q2

REPORT INFORMATION
  Report Type: 
  Country: None (occurrence: None)
  Receive Date: 20090505
  Receipt Date: 20090424
  Transmission Date: 20091009
  Serious: Yes (Other)
  Sender: FDA-Public Use
  Company Number: US-PFIZER INC-2009204080

PATIENT
  Sex: Female
  Weight: 72.562 kg

DRUGS (2)
  1. LIPITOR [Suspect]
     Indication: BLOOD CHOLESTEROL INCREASED
     Dosage: 20 MG, 1X/DAY
     Dates: start: 20090421
  2. BENICAR [Concomitant]

REACTIONS (4)
  - CHEST PAIN [None]
  - DYSARTHRIA [None]
  - FEELING ABNORMAL [None]
  - HYPOAESTHESIA [None]
